FAERS Safety Report 7190143-4 (Version None)
Quarter: 2010Q4

REPORT INFORMATION
  Report Type: 
  Country: None (occurrence: None)
  Receive Date: 20101223
  Receipt Date: 20101220
  Transmission Date: 20110411
  Serious: Yes (Other)
  Sender: FDA-Public Use
  Company Number: FR-EISAI INC.-E2080-00352-SPO-FR

PATIENT
  Age: 47 Year
  Sex: Male

DRUGS (4)
  1. INOVELON [Suspect]
     Indication: LENNOX-GASTAUT SYNDROME
     Route: 048
     Dates: start: 20100511, end: 20100801
  2. DEPAKENE [Concomitant]
     Route: 048
  3. TEGRETOL [Concomitant]
     Route: 048
  4. KEPPRA [Concomitant]
     Route: 048

REACTIONS (3)
  - ABNORMAL BEHAVIOUR [None]
  - EPILEPSY [None]
  - SOMNOLENCE [None]
